FAERS Safety Report 5244970-0 (Version None)
Quarter: 2007Q1

REPORT INFORMATION
  Report Type: 
  Country: None (occurrence: None)
  Receive Date: 20070221
  Receipt Date: 20070221
  Transmission Date: 20070707
  Serious: No
  Sender: FDA-Public Use
  Company Number: None

PATIENT
  Age: 22 Year
  Sex: Female
  Weight: 46.2669 kg

DRUGS (1)
  1. ACCUTANE [Suspect]
     Indication: ACNE
     Dosage: 2 TABLETS  TWICE PER DAY PO
     Route: 048
     Dates: start: 20000301, end: 20000801

REACTIONS (1)
  - KERATOCONJUNCTIVITIS SICCA [None]
